FAERS Safety Report 5131179-4 (Version None)
Quarter: 2006Q4

REPORT INFORMATION
  Report Type: 
  Country: None (occurrence: None)
  Receive Date: 20061020
  Receipt Date: 20061010
  Transmission Date: 20070319
  Serious: Yes (Hospitalization)
  Sender: FDA-Public Use
  Company Number: FR-JNJFOC-20061002239

PATIENT
  Age: 60 Year
  Sex: Female

DRUGS (3)
  1. REMICADE [Suspect]
     Indication: RHEUMATOID ARTHRITIS
     Dosage: 13 INFUSIONS PERFORMED
     Route: 042
  2. NOVATREX [Concomitant]
     Route: 048
  3. CORTANCYL [Concomitant]
     Route: 048

REACTIONS (3)
  - LUNG INFECTION [None]
  - NOCARDIOSIS [None]
  - STAPHYLOCOCCAL INFECTION [None]
